FAERS Safety Report 8065804-5 (Version None)
Quarter: 2012Q1

REPORT INFORMATION
  Report Type: 
  Country: None (occurrence: None)
  Receive Date: 20120124
  Receipt Date: 20120117
  Transmission Date: 20120608
  Serious: Yes (Other)
  Sender: FDA-Public Use
  Company Number: BR-PFIZER INC-2012013076

PATIENT
  Sex: Male
  Weight: 63 kg

DRUGS (1)
  1. ALPRAZOLAM [Suspect]
     Indication: RELAXATION THERAPY
     Dosage: 2 MG, 3X/DAY (1 TABLET, 3X/DAY)
     Route: 048
     Dates: start: 20060101

REACTIONS (5)
  - CHRONIC HEPATITIS [None]
  - PHOBIA [None]
  - DISORIENTATION [None]
  - MICTURITION DISORDER [None]
  - GASTRIC DISORDER [None]
